FAERS Safety Report 7622298-9 (Version None)
Quarter: 2011Q3

REPORT INFORMATION
  Report Type: 
  Country: None (occurrence: None)
  Receive Date: 20110720
  Receipt Date: 20110630
  Transmission Date: 20111222
  Serious: Yes (Hospitalization, Other)
  Sender: FDA-Public Use
  Company Number: US-BAYER-2011-018440

PATIENT
  Sex: Female
  Weight: 113 kg

DRUGS (11)
  1. YAZ [Suspect]
     Indication: ACNE
     Dosage: UNK
     Route: 048
     Dates: start: 20090201, end: 20090331
  2. DOXYCYCLINE MONOHYDRATE [Concomitant]
     Dosage: 100 MG, BID
     Route: 048
     Dates: start: 20071113
  3. VITAMIN D [Concomitant]
     Dosage: 50000 U, OW
     Route: 048
     Dates: start: 20081213
  4. ACCUTANE [Concomitant]
     Dosage: 40 MG, BID
     Route: 048
     Dates: start: 20090220, end: 20090331
  5. CEPHALEXIN [Concomitant]
     Dosage: 500 MG, BID
     Route: 048
     Dates: start: 20090323
  6. YAZ [Suspect]
     Indication: HIDRADENITIS
  7. NIFEREX [Concomitant]
     Dosage: UNK
     Route: 048
     Dates: start: 20061221
  8. FLEXERIL [Concomitant]
     Dosage: 10 MG, QD
     Route: 048
     Dates: start: 20080212
  9. LASIX [Concomitant]
     Dosage: 20 MG, QD
     Route: 048
     Dates: start: 20080320
  10. PREDNISONE [Concomitant]
     Dosage: UNK
     Route: 048
     Dates: start: 20080311
  11. LEVAQUIN [Concomitant]
     Dosage: 250 MG, QD
     Route: 048
     Dates: start: 20081119

REACTIONS (4)
  - PULMONARY EMBOLISM [None]
  - HAEMORRHAGE [None]
  - EMOTIONAL DISTRESS [None]
  - PAIN [None]
